FAERS Safety Report 11070212 (Version 1)
Quarter: 2015Q2

REPORT INFORMATION
  Report Type: Spontaneous
  Country: US (occurrence: US)
  Receive Date: 20150427
  Receipt Date: 20150427
  Transmission Date: 20150821
  Serious: No
  Sender: FDA-Public Use
  Company Number: US-MALLINCKRODT-T201500001

PATIENT
  Sex: Female

DRUGS (2)
  1. HYDROCODONE/ACETAMINOPHEN [Suspect]
     Active Substance: ACETAMINOPHEN\HYDROCODONE
     Indication: POLYMYALGIA RHEUMATICA
     Dosage: UNK
     Route: 065
     Dates: start: 201412
  2. HYDROCODONE BITARTRATE AND ACETAMINOPHEN [Concomitant]
     Active Substance: ACETAMINOPHEN\HYDROCODONE BITARTRATE
     Indication: POLYMYALGIA RHEUMATICA

REACTIONS (3)
  - Drug ineffective [Unknown]
  - Abdominal discomfort [Unknown]
  - Feeling abnormal [Unknown]

NARRATIVE: CASE EVENT DATE: 201412
